FAERS Safety Report 9304239 (Version 1)
Quarter: 2013Q2

REPORT INFORMATION
  Report Type: Spontaneous
  Country: FR (occurrence: FR)
  Receive Date: 20130522
  Receipt Date: 20130522
  Transmission Date: 20140414
  Serious: Yes (Hospitalization)
  Sender: FDA-Public Use
  Company Number: FR-ELI_LILLY_AND_COMPANY-FR201305004551

PATIENT
  Age: 72 Year
  Sex: Male

DRUGS (12)
  1. GEMZAR [Suspect]
     Indication: PANCREATIC CARCINOMA METASTATIC
     Dosage: 1750 MG, WEEKLY (1/W)
     Route: 042
     Dates: start: 20120726, end: 20130213
  2. LANTUS [Concomitant]
     Dosage: UNK
  3. MORPHINE [Concomitant]
     Dosage: UNK
  4. BISOPROLOL FUMARATE W/HYDROCHLOROTHIAZIDE [Concomitant]
     Dosage: UNK
  5. CALCIUM [Concomitant]
     Dosage: UNK
  6. EUPANTOL [Concomitant]
     Dosage: UNK
  7. HEMIGOXINE NATIVELLE [Concomitant]
     Dosage: 0.125 MG, UNK
  8. KARDEGIC [Concomitant]
     Dosage: UNK
  9. LASILIX [Concomitant]
     Dosage: UNK
  10. TERCIAN [Concomitant]
     Dosage: UNK
  11. VITAMIN B1 [Concomitant]
  12. VITAMIN B6 [Concomitant]

REACTIONS (3)
  - Confusional state [Not Recovered/Not Resolved]
  - Korsakoff^s syndrome [Unknown]
  - Retrograde amnesia [Unknown]
